FAERS Safety Report 5912646-X (Version None)
Quarter: 2008Q4

REPORT INFORMATION
  Report Type: 
  Country: None (occurrence: None)
  Receive Date: 20081008
  Receipt Date: 20080924
  Transmission Date: 20090506
  Serious: Yes (Other)
  Sender: FDA-Public Use
  Company Number: ES-GENENTECH-268791

PATIENT

DRUGS (1)
  1. RANIBIZUMAB [Suspect]
     Indication: CHOROIDAL NEOVASCULARISATION
     Route: 031

REACTIONS (2)
  - RETINAL HAEMORRHAGE [None]
  - VISUAL ACUITY REDUCED [None]
